FAERS Safety Report 5021251-1 (Version None)
Quarter: 2006Q2

REPORT INFORMATION
  Report Type: 
  Country: None (occurrence: None)
  Receive Date: 20060608
  Receipt Date: 20060404
  Transmission Date: 20061013
  Serious: Yes (Hospitalization)
  Sender: FDA-Public Use
  Company Number: US-SANOFI-SYNTHELABO-A03200602111

PATIENT
  Sex: Female

DRUGS (4)
  1. PROVIGIL [Suspect]
     Dosage: UNK
     Route: 065
  2. ULTRAM [Suspect]
     Dosage: UNK
     Route: 065
  3. TOPAMAX [Suspect]
     Dosage: UNK
     Route: 065
  4. AMBIEN [Suspect]
     Indication: DRUG USE FOR UNKNOWN INDICATION
     Route: 048
     Dates: start: 20010101

REACTIONS (6)
  - BLOOD POTASSIUM DECREASED [None]
  - DIZZINESS [None]
  - HYPOGLYCAEMIA [None]
  - HYPOTENSION [None]
  - METABOLIC ACIDOSIS [None]
  - SOMNOLENCE [None]
